FAERS Safety Report 7617284-9 (Version None)
Quarter: 2011Q3

REPORT INFORMATION
  Report Type: 
  Country: None (occurrence: None)
  Receive Date: 20110718
  Receipt Date: 20110706
  Transmission Date: 20111222
  Serious: Yes (Hospitalization, Disabling, Other)
  Sender: FDA-Public Use
  Company Number: US-ELI_LILLY_AND_COMPANY-US201003001853

PATIENT
  Sex: Female

DRUGS (21)
  1. FORTEO [Suspect]
     Dosage: 20 UG, DAILY (1/D)
  2. FORTEO [Suspect]
     Dosage: 20 UG, QD
  3. DIAZEPAM [Concomitant]
     Indication: MUSCLE SPASMS
     Dosage: 5 MG, AS NEEDED
  4. METFORMIN HCL [Concomitant]
     Dosage: 500 MG, DAILY (1/D)
  5. PROMETHAZINE [Concomitant]
     Dosage: 25 MG, AS NEEDED
  6. ACTOS [Concomitant]
     Dosage: 45 MG, DAILY (1/D)
  7. FORTEO [Suspect]
     Dosage: 20 UG, DAILY (1/D)
  8. DILTIAZEM [Concomitant]
     Dosage: 180 MG, DAILY (1/D)
  9. HYDROCODONE [Concomitant]
     Dosage: 10 MG, UNK
  10. LOVASTATIN [Concomitant]
     Dosage: 40 MG, DAILY (1/D)
  11. FORTEO [Suspect]
     Dosage: 20 UG, QD
     Route: 065
  12. FORTEO [Suspect]
     Dosage: 20 UG, QD
  13. LISINOPRIL [Concomitant]
  14. FORTEO [Suspect]
     Indication: OSTEOPOROSIS
     Dosage: 20 UG, DAILY (1/D)
     Dates: start: 20100224
  15. FORTEO [Suspect]
     Dosage: 20 UG, DAILY (1/D)
  16. HYDROCODONE [Concomitant]
     Indication: PAIN
     Dosage: 7.5 D/F, EVERY 4 HRS
  17. PANTOPRAZOLE SODIUM [Concomitant]
  18. ANTIDEPRESSANTS [Concomitant]
     Indication: FIBROMYALGIA
  19. AMITRIPTYLINE HCL [Concomitant]
  20. AMITRIPTYLINE HCL [Concomitant]
     Dosage: 25 MG, DAILY (1/D)
  21. GLIMEPIRIDE [Concomitant]
     Indication: BLOOD GLUCOSE ABNORMAL

REACTIONS (27)
  - ACTIVITIES OF DAILY LIVING IMPAIRED [None]
  - CONTUSION [None]
  - SCREAMING [None]
  - DRUG DOSE OMISSION [None]
  - INJECTION SITE HAEMORRHAGE [None]
  - INJECTION SITE PAIN [None]
  - SURGERY [None]
  - HYPERSENSITIVITY [None]
  - MUSCLE SPASMS [None]
  - PAIN [None]
  - BACK PAIN [None]
  - PLATELET COUNT DECREASED [None]
  - AMNESIA [None]
  - SPINAL FRACTURE [None]
  - SKIN MASS [None]
  - INJECTION SITE ERYTHEMA [None]
  - FIBROMYALGIA [None]
  - GAIT DISTURBANCE [None]
  - INFLAMMATION [None]
  - INSOMNIA [None]
  - INJECTION SITE DISCOLOURATION [None]
  - DYSGEUSIA [None]
  - INJECTION SITE HAEMATOMA [None]
  - ABASIA [None]
  - ARTHRALGIA [None]
  - FEELING ABNORMAL [None]
  - EAR PAIN [None]
